FAERS Safety Report 7693161-2 (Version None)
Quarter: 2011Q3

REPORT INFORMATION
  Report Type: 
  Country: None (occurrence: None)
  Receive Date: 20110819
  Receipt Date: 20110812
  Transmission Date: 20111222
  Serious: Yes (Hospitalization)
  Sender: FDA-Public Use
  Company Number: BR-BRISTOL-MYERS SQUIBB COMPANY-15978927

PATIENT
  Age: 73 Year
  Sex: Female

DRUGS (6)
  1. LOSARTAN [Concomitant]
  2. SYNTHROID [Concomitant]
  3. OLCADIL [Concomitant]
  4. GLIFAGE XR [Suspect]
  5. INDERAL [Concomitant]
  6. ONGLYZA [Suspect]
     Indication: DIABETES MELLITUS
     Dosage: INTERUPPTED ON JUN OR JUL11 AND STARTED TAKING 2.5MG PER DY
     Route: 048
     Dates: start: 20101101

REACTIONS (7)
  - GASTRIC DISORDER [None]
  - BLOOD GLUCOSE INCREASED [None]
  - PNEUMONIA [None]
  - VOMITING [None]
  - WRONG TECHNIQUE IN DRUG USAGE PROCESS [None]
  - NAUSEA [None]
  - WEIGHT INCREASED [None]
